FAERS Safety Report 18323892 (Version 1)
Quarter: 2020Q3

REPORT INFORMATION
  Report Type: Spontaneous
  Country: US (occurrence: US)
  Receive Date: 20200928
  Receipt Date: 20200928
  Transmission Date: 20201103
  Serious: No
  Sender: FDA-Public Use
  Company Number: US-NEUROCRINE BIOSCIENCES INC.-2020NBI03413

PATIENT
  Age: 26 Year
  Sex: Male
  Weight: 90.8 kg

DRUGS (3)
  1. ABILIFY [Concomitant]
     Active Substance: ARIPIPRAZOLE
     Indication: BIPOLAR DISORDER
     Dates: start: 2020, end: 2020
  2. ABILIFY [Concomitant]
     Active Substance: ARIPIPRAZOLE
     Indication: SCHIZOPHRENIA
     Dates: start: 2020
  3. INGREZZA [Suspect]
     Active Substance: VALBENAZINE
     Indication: RESTLESS LEGS SYNDROME
     Route: 048
     Dates: start: 20200814, end: 20200829

REACTIONS (3)
  - Rash [Recovered/Resolved]
  - Product use in unapproved indication [Unknown]
  - Angioedema [Recovered/Resolved]

NARRATIVE: CASE EVENT DATE: 20200814
